FAERS Safety Report 25367593 (Version 1)
Quarter: 2025Q2

REPORT INFORMATION
  Report Type: Spontaneous
  Country: GB (occurrence: GB)
  Receive Date: 20250528
  Receipt Date: 20250528
  Transmission Date: 20250716
  Serious: Yes (Hospitalization)
  Sender: ROCHE
  Company Number: GB-ROCHE-10000293866

PATIENT
  Age: 59 Year
  Sex: Male

DRUGS (2)
  1. GLOFITAMAB [Suspect]
     Active Substance: GLOFITAMAB
     Indication: Non-Hodgkin^s lymphoma
     Route: 065
     Dates: start: 20231215
  2. RIVAC [Concomitant]
     Dates: start: 2023

REACTIONS (2)
  - Neutropenic sepsis [Unknown]
  - Cytokine release syndrome [Unknown]
